FAERS Safety Report 6872800-X (Version None)
Quarter: 2010Q3

REPORT INFORMATION
  Report Type: 
  Country: None (occurrence: None)
  Receive Date: 20100723
  Receipt Date: 20081223
  Transmission Date: 20110219
  Serious: No
  Sender: FDA-Public Use
  Company Number: US-PFIZER INC-2008088926

PATIENT
  Age: 71 Year
  Sex: Female
  Weight: 43.1 kg

DRUGS (3)
  1. CHANTIX [Suspect]
     Indication: SMOKING CESSATION THERAPY
     Dosage: 1 MG, 2X/DAY
     Dates: start: 20081008
  2. SIMVASTATIN [Concomitant]
  3. ALENDRONATE SODIUM [Concomitant]

REACTIONS (3)
  - NAUSEA [None]
  - RETCHING [None]
  - VIRAL INFECTION [None]
